FAERS Safety Report 25018273 (Version 6)
Quarter: 2025Q3

REPORT INFORMATION
  Report Type: Spontaneous
  Country: US (occurrence: US)
  Receive Date: 20250227
  Receipt Date: 20250821
  Transmission Date: 20251021
  Serious: Yes (Life-Threatening, Hospitalization, Disabling, Other)
  Sender: PFIZER
  Company Number: US-PFIZER INC-202500043004

PATIENT
  Age: 14 Year
  Sex: Female
  Weight: 31.75 kg

DRUGS (13)
  1. OXBRYTA [Suspect]
     Active Substance: VOXELOTOR
     Indication: Sickle cell anaemia
     Dosage: 500 MG, 2X/DAY
     Route: 048
     Dates: start: 202310, end: 202401
  2. OXBRYTA [Suspect]
     Active Substance: VOXELOTOR
     Dosage: 500 MG, 2X/DAY
     Route: 048
     Dates: start: 202407
  3. OXBRYTA [Suspect]
     Active Substance: VOXELOTOR
     Dosage: 500 MG, 2X/DAY
     Route: 048
     Dates: start: 20240711, end: 202409
  4. OXBRYTA [Suspect]
     Active Substance: VOXELOTOR
     Dosage: 500 MG, 2X/DAY
     Route: 048
     Dates: start: 202409, end: 202501
  5. OXBRYTA [Suspect]
     Active Substance: VOXELOTOR
     Dosage: 500 MG, 2X/DAY
     Route: 048
  6. HYDROXYUREA [Suspect]
     Active Substance: HYDROXYUREA
     Indication: Sickle cell disease
     Dosage: 1000 MG, DAILY
  7. HYDROXYUREA [Suspect]
     Active Substance: HYDROXYUREA
     Dates: start: 20240905
  8. HYDROXYUREA [Suspect]
     Active Substance: HYDROXYUREA
     Dates: end: 202411
  9. ENDARI [Suspect]
     Active Substance: GLUTAMINE
     Indication: Sickle cell disease
     Dates: end: 202411
  10. IBUPROFEN [Concomitant]
     Active Substance: IBUPROFEN
  11. PEPCID [Concomitant]
     Active Substance: FAMOTIDINE
     Dosage: UNK, DAILY (AT BEDTIME)
     Dates: start: 20240905
  12. TYLENOL [Concomitant]
     Active Substance: ACETAMINOPHEN
     Dosage: UNK, 1X/DAY (AT 8:00 PM)
     Dates: start: 20240904
  13. ACETAMINOPHEN\HYDROCODONE [Concomitant]
     Active Substance: ACETAMINOPHEN\HYDROCODONE
     Indication: Pain
     Route: 048

REACTIONS (22)
  - Sickle cell anaemia with crisis [Recovering/Resolving]
  - Osteonecrosis [Not Recovered/Not Resolved]
  - Dyspnoea [Unknown]
  - Abdominal pain [Recovering/Resolving]
  - Lymphadenopathy [Recovering/Resolving]
  - Abdominal pain upper [Recovering/Resolving]
  - Drug hypersensitivity [Recovering/Resolving]
  - Illness [Not Recovered/Not Resolved]
  - Hyperbilirubinaemia [Recovering/Resolving]
  - Anaemia [Recovering/Resolving]
  - Constipation [Recovering/Resolving]
  - Bone density decreased [Recovering/Resolving]
  - Hip arthroplasty [Unknown]
  - Swelling face [Unknown]
  - Nausea [Recovered/Resolved]
  - Vomiting [Recovered/Resolved]
  - Urinary tract infection [Unknown]
  - Emotional distress [Unknown]
  - Gait inability [Unknown]
  - Pain [Unknown]
  - Off label use [Unknown]
  - Off label use [Unknown]

NARRATIVE: CASE EVENT DATE: 20230101
